FAERS Safety Report 4966755-2 (Version None)
Quarter: 2006Q1

REPORT INFORMATION
  Report Type: 
  Country: None (occurrence: None)
  Receive Date: 20060201
  Receipt Date: 20051117
  Transmission Date: 20060701
  Serious: No
  Sender: FDA-Public Use
  Company Number: 2005PV005139

PATIENT
  Age: 68 Year
  Sex: Female

DRUGS (3)
  1. BYETTA [Suspect]
     Indication: DIABETES MELLITUS
     Dosage: 10 MCG;BID;SC
     Route: 058
     Dates: start: 20050101
  2. LANTUS [Concomitant]
  3. HUMALOG [Concomitant]

REACTIONS (2)
  - DRUG ADMINISTRATION ERROR [None]
  - MEDICATION ERROR [None]
